FAERS Safety Report 4523061-8 (Version None)
Quarter: 2004Q4

REPORT INFORMATION
  Report Type: 
  Country: None (occurrence: None)
  Receive Date: 20041210
  Receipt Date: 20041202
  Transmission Date: 20050328
  Serious: Yes (Other)
  Sender: FDA-Public Use
  Company Number: PHBS2004JP16392

PATIENT
  Age: 75 Year
  Sex: Female

DRUGS (2)
  1. DIOVAN [Suspect]
     Route: 048
     Dates: end: 20040901
  2. DIOVAN [Suspect]
     Dosage: 40 MG/DAY
     Dates: start: 20041001

REACTIONS (3)
  - CHOLECYSTITIS ACUTE [None]
  - JAUNDICE [None]
  - SWELLING FACE [None]
